FAERS Safety Report 10263730 (Version 1)
Quarter: 2014Q2

REPORT INFORMATION
  Report Type: Spontaneous
  Country: US (occurrence: US)
  Receive Date: 20140627
  Receipt Date: 20140627
  Transmission Date: 20141212
  Serious: No
  Sender: FDA-Public Use
  Company Number: US-GILEAD-2014-0106548

PATIENT
  Sex: Female

DRUGS (2)
  1. LETAIRIS [Suspect]
     Indication: PRODUCT USED FOR UNKNOWN INDICATION
     Dosage: 10 MG, QD
     Route: 065
     Dates: start: 20121214
  2. REMODULIN [Suspect]

REACTIONS (6)
  - Erythema [Unknown]
  - Pain [Unknown]
  - Unevaluable event [Unknown]
  - Pruritus [Unknown]
  - Palpitations [Unknown]
  - Headache [Unknown]
